FAERS Safety Report 8355304-7 (Version None)
Quarter: 2012Q2

REPORT INFORMATION
  Report Type: 
  Country: None (occurrence: None)
  Receive Date: 20120511
  Receipt Date: 20120509
  Transmission Date: 20120825
  Serious: Yes (Other)
  Sender: FDA-Public Use
  Company Number: CA-BAYER-2012-030651

PATIENT
  Age: 61 Year
  Sex: Female

DRUGS (4)
  1. MULTI-VITAMIN [Concomitant]
  2. PHENOBARBITAL TAB [Concomitant]
  3. DILANTIN [Concomitant]
  4. NAPROXEN (ALEVE) [Suspect]
     Indication: ARTHRITIS
     Dosage: 1 DF, ONCE
     Route: 048
     Dates: start: 20111003

REACTIONS (5)
  - PRURITUS [None]
  - HYPERSENSITIVITY [None]
  - VISION BLURRED [None]
  - ERYTHEMA [None]
  - URTICARIA [None]
